FAERS Safety Report 16219658 (Version 1)
Quarter: 2019Q2

REPORT INFORMATION
  Report Type: Spontaneous
  Country: BE (occurrence: BE)
  Receive Date: 20190420
  Receipt Date: 20190420
  Transmission Date: 20190711
  Serious: Yes (Other)
  Sender: FDA-Public Use
  Company Number: BE-ACCORD-123264

PATIENT
  Age: 53 Year
  Sex: Male
  Weight: 67 kg

DRUGS (1)
  1. SERTRALINE [Suspect]
     Active Substance: SERTRALINE HYDROCHLORIDE
     Indication: POST-TRAUMATIC STRESS DISORDER
     Dates: start: 20180904

REACTIONS (5)
  - Muscle twitching [Not Recovered/Not Resolved]
  - Libido decreased [Not Recovered/Not Resolved]
  - Night sweats [Not Recovered/Not Resolved]
  - Extrasystoles [Not Recovered/Not Resolved]
  - Arrhythmia [Not Recovered/Not Resolved]
